FAERS Safety Report 5357830-1 (Version None)
Quarter: 2007Q2

REPORT INFORMATION
  Report Type: 
  Country: None (occurrence: None)
  Receive Date: 20070530
  Receipt Date: 20061019
  Transmission Date: 20071010
  Serious: Yes (Hospitalization)
  Sender: FDA-Public Use
  Company Number: US200610004033

PATIENT
  Age: 66 Year
  Sex: Female
  Weight: 58 kg

DRUGS (3)
  1. ZYPREXA [Suspect]
     Dosage: 2.5 MG
     Dates: start: 20031101, end: 20051101
  2. PERPHENAZINE [Concomitant]
  3. PREDNISONE TAB [Concomitant]

REACTIONS (4)
  - DIABETES MELLITUS [None]
  - DIABETIC COMA [None]
  - HYPERGLYCAEMIA [None]
  - HYPERTENSION [None]
